FAERS Safety Report 13790245 (Version 3)
Quarter: 2017Q3

REPORT INFORMATION
  Report Type: Spontaneous
  Country: US (occurrence: US)
  Receive Date: 20170725
  Receipt Date: 20170808
  Transmission Date: 20171127
  Serious: Yes (Other)
  Sender: FDA-Public Use
  Company Number: US-ASTRAZENECA-2017SE73892

PATIENT
  Sex: Male

DRUGS (1)
  1. IRESSA [Suspect]
     Active Substance: GEFITINIB
     Indication: LUNG ADENOCARCINOMA
     Route: 048
     Dates: start: 2017

REACTIONS (8)
  - Pneumonia [Unknown]
  - Weight decreased [Unknown]
  - Metastases to lymph nodes [Unknown]
  - Lung infection [Unknown]
  - Malignant neoplasm progression [Unknown]
  - Pain [Unknown]
  - Bronchitis [Unknown]
  - Drug ineffective [Unknown]
